FAERS Safety Report 4842653-X (Version None)
Quarter: 2005Q4

REPORT INFORMATION
  Report Type: 
  Country: None (occurrence: None)
  Receive Date: 20051201
  Receipt Date: 20051028
  Transmission Date: 20060501
  Serious: Yes (Life-Threatening, Hospitalization)
  Sender: FDA-Public Use
  Company Number: DE-BOEHRINGER INGELHEIM PHARMACEUTICALS, INC.-2005-DE-04527DE

PATIENT
  Sex: Male
  Weight: 77 kg

DRUGS (4)
  1. AGGRENOX [Suspect]
     Indication: INFARCTION
     Route: 048
     Dates: start: 20040325, end: 20050816
  2. ENALAPRIL 10 [Concomitant]
     Route: 048
  3. CIPRAMIL 20 1/2 [Concomitant]
     Route: 048
  4. PANTOZOL [Concomitant]
     Route: 048

REACTIONS (3)
  - ANAEMIA [None]
  - GASTRIC HAEMORRHAGE [None]
  - GASTRIC ULCER [None]
